FAERS Safety Report 25685124 (Version 2)
Quarter: 2025Q3

REPORT INFORMATION
  Report Type: Report from Study
  Country: CA (occurrence: CA)
  Receive Date: 20250815
  Receipt Date: 20250820
  Transmission Date: 20251020
  Serious: Yes (Death, Other)
  Sender: MYLAN
  Company Number: CA-MYLANLABS-2025M1069217

PATIENT
  Age: 67 Year
  Sex: Female

DRUGS (4)
  1. CLOZAPINE [Suspect]
     Active Substance: CLOZAPINE
     Indication: Product used for unknown indication
  2. CLOZAPINE [Suspect]
     Active Substance: CLOZAPINE
     Route: 065
  3. CLOZAPINE [Suspect]
     Active Substance: CLOZAPINE
     Route: 065
  4. CLOZAPINE [Suspect]
     Active Substance: CLOZAPINE

REACTIONS (3)
  - Death [Fatal]
  - Neutropenia [Unknown]
  - White blood cell count decreased [Unknown]

NARRATIVE: CASE EVENT DATE: 20231031
